FAERS Safety Report 17766222 (Version 1)
Quarter: 2020Q2

REPORT INFORMATION
  Report Type: Report from Study
  Country: GB (occurrence: GB)
  Receive Date: 20200511
  Receipt Date: 20200511
  Transmission Date: 20200714
  Serious: Yes (Hospitalization)
  Sender: FDA-Public Use
  Company Number: GB-ROCHE-2592930

PATIENT
  Sex: Female

DRUGS (2)
  1. METHOTREXATE. [Concomitant]
     Active Substance: METHOTREXATE
  2. ROACTEMRA [Suspect]
     Active Substance: TOCILIZUMAB
     Indication: RHEUMATOID ARTHRITIS
     Dosage: PRE-FILLED PEN
     Route: 058
     Dates: start: 2019

REACTIONS (5)
  - Swollen tongue [Unknown]
  - Movement disorder [Unknown]
  - Pruritus [Unknown]
  - Hypersensitivity [Unknown]
  - Ear infection [Unknown]
